FAERS Safety Report 6592602-1 (Version None)
Quarter: 2010Q1

REPORT INFORMATION
  Report Type: 
  Country: None (occurrence: None)
  Receive Date: 20100221
  Receipt Date: 20091217
  Transmission Date: 20100710
  Serious: No
  Sender: FDA-Public Use
  Company Number: US-ALLERGAN-0915327US

PATIENT
  Age: 48 Year
  Sex: Female

DRUGS (4)
  1. BOTOX [Suspect]
     Indication: HEADACHE
     Dosage: 190 UNITS, SINGLE
     Route: 030
     Dates: start: 20090729, end: 20090729
  2. BOTOX [Suspect]
     Dosage: UNK
     Route: 030
     Dates: start: 20091028, end: 20091028
  3. CARBOPLATIN [Suspect]
  4. TAXOTERE [Suspect]

REACTIONS (2)
  - DRUG INEFFECTIVE [None]
  - DRUG INTERACTION [None]
